FAERS Safety Report 8516752-5 (Version None)
Quarter: 2012Q3

REPORT INFORMATION
  Report Type: 
  Country: None (occurrence: None)
  Receive Date: 20120706
  Receipt Date: 20120627
  Transmission Date: 20120928
  Serious: Yes (Death)
  Sender: FDA-Public Use
  Company Number: AUR-APL-2012-02897

PATIENT
  Age: 48 Year
  Sex: Male

DRUGS (4)
  1. BENZOYLECGONINE (ECGONINE BENZOATE) [Suspect]
     Indication: PRODUCT USED FOR UNKNOWN INDICATION
  2. KEPPRA [Suspect]
     Indication: PRODUCT USED FOR UNKNOWN INDICATION
  3. CITALOPRAM HYDROBROMIDE [Suspect]
     Indication: PRODUCT USED FOR UNKNOWN INDICATION
  4. CYCLOBENZAPRINE [Suspect]
     Indication: PRODUCT USED FOR UNKNOWN INDICATION

REACTIONS (4)
  - TOXICITY TO VARIOUS AGENTS [None]
  - CARDIOMEGALY [None]
  - CORONARY ARTERY DISEASE [None]
  - COMPLETED SUICIDE [None]
